FAERS Safety Report 7914511-5 (Version None)
Quarter: 2011Q4

REPORT INFORMATION
  Report Type: 
  Country: None (occurrence: None)
  Receive Date: 20111115
  Receipt Date: 20111101
  Transmission Date: 20120403
  Serious: Yes (Hospitalization)
  Sender: FDA-Public Use
  Company Number: PHFR2011GB05627

PATIENT
  Sex: Female
  Weight: 50.3 kg

DRUGS (4)
  1. EXJADE [Suspect]
     Route: 048
  2. EXJADE [Suspect]
     Dosage: 1500 MG/DAY
     Route: 048
     Dates: end: 20110801
  3. PENICILLIN [Concomitant]
     Indication: DOUBLE HETEROZYGOUS SICKLING DISORDERS
     Dosage: 250 DF/DAY
     Route: 048
  4. EXJADE [Suspect]
     Indication: CHELATION THERAPY
     Dosage: 1500 MG, DAILY
     Route: 048
     Dates: start: 20060301

REACTIONS (10)
  - SERUM FERRITIN INCREASED [None]
  - HYPOPHAGIA [None]
  - C-REACTIVE PROTEIN INCREASED [None]
  - ABDOMINAL PAIN UPPER [None]
  - NAUSEA [None]
  - WEIGHT DECREASED [None]
  - DECREASED APPETITE [None]
  - VOMITING [None]
  - WHITE BLOOD CELL COUNT INCREASED [None]
  - HEPATIC ENZYME INCREASED [None]
